FAERS Safety Report 6001456-3 (Version None)
Quarter: 2008Q4

REPORT INFORMATION
  Report Type: 
  Country: None (occurrence: None)
  Receive Date: 20081215
  Receipt Date: 20071203
  Transmission Date: 20090506
  Serious: No
  Sender: FDA-Public Use
  Company Number: US-AMGEN-KDL251380

PATIENT
  Sex: Female

DRUGS (2)
  1. ENBREL [Suspect]
     Indication: PSORIATIC ARTHROPATHY
     Route: 058
     Dates: start: 20071101
  2. ENBREL [Suspect]
     Indication: PSORIASIS

REACTIONS (5)
  - EYE PAIN [None]
  - EYE SWELLING [None]
  - FUNGAL INFECTION [None]
  - INJECTION SITE HAEMATOMA [None]
  - OCULAR HYPERAEMIA [None]
